FAERS Safety Report 14906351 (Version 1)
Quarter: 2018Q2

REPORT INFORMATION
  Report Type: Spontaneous
  Country: US (occurrence: US)
  Receive Date: 20180517
  Receipt Date: 20180517
  Transmission Date: 20180711
  Serious: No
  Sender: FDA-Public Use
  Company Number: US-SA-2018SA106117

PATIENT
  Age: 57 Year
  Sex: Female

DRUGS (5)
  1. SOLOSTAR [Suspect]
     Active Substance: DEVICE
     Route: 051
     Dates: start: 2012
  2. LANTUS SOLOSTAR [Suspect]
     Active Substance: INSULIN GLARGINE
     Indication: TYPE 2 DIABETES MELLITUS
     Dosage: 100 UNITS AT HS,50 UNITS IN AM
     Route: 051
     Dates: start: 2012
  3. LANTUS SOLOSTAR [Suspect]
     Active Substance: INSULIN GLARGINE
     Indication: TYPE 2 DIABETES MELLITUS
     Dosage: 100 UNITS AT HS,50 UNITS IN AM
     Route: 051
     Dates: start: 2012
  4. SOLOSTAR [Suspect]
     Active Substance: DEVICE
     Route: 051
     Dates: start: 2012
  5. LANTUS SOLOSTAR [Suspect]
     Active Substance: INSULIN GLARGINE
     Indication: TYPE 2 DIABETES MELLITUS
     Dosage: 100 UNITS AT HS,50 UNITS IN AM
     Route: 051
     Dates: start: 2012

REACTIONS (3)
  - Hypoglycaemia [Unknown]
  - Product use issue [Unknown]
  - Dysgeusia [Unknown]
